FAERS Safety Report 23726862 (Version 6)
Quarter: 2024Q2

REPORT INFORMATION
  Report Type: Spontaneous
  Country: CA (occurrence: CA)
  Receive Date: 20240410
  Receipt Date: 20240607
  Transmission Date: 20240716
  Serious: Yes (Other)
  Sender: FDA-Public Use
  Company Number: CA-PFIZER INC-PV202300184745

PATIENT
  Age: 29 Year
  Sex: Female
  Weight: 46 kg

DRUGS (3)
  1. ABRILADA [Suspect]
     Active Substance: ADALIMUMAB-AFZB
     Indication: Colitis ulcerative
     Dosage: FREQUENCY: 2 WEEKS
     Route: 058
     Dates: start: 20221223, end: 20231108
  2. ABRILADA [Suspect]
     Active Substance: ADALIMUMAB-AFZB
     Dosage: 40 MG, WEEKLY
     Route: 058
     Dates: start: 20240531
  3. ABRILADA [Suspect]
     Active Substance: ADALIMUMAB-AFZB
     Dosage: 40 MG, WEEKLY
     Route: 058
     Dates: start: 20240605

REACTIONS (9)
  - Rectal haemorrhage [Unknown]
  - Loss of therapeutic response [Unknown]
  - Diarrhoea [Unknown]
  - Condition aggravated [Unknown]
  - Haemorrhoids [Unknown]
  - Arthralgia [Unknown]
  - Microcytic anaemia [Unknown]
  - C-reactive protein increased [Unknown]
  - Off label use [Unknown]

NARRATIVE: CASE EVENT DATE: 20220101
